FAERS Safety Report 5065436-7 (Version None)
Quarter: 2006Q3

REPORT INFORMATION
  Report Type: 
  Country: None (occurrence: None)
  Receive Date: 20060731
  Receipt Date: 20060619
  Transmission Date: 20061208
  Serious: Yes (Other)
  Sender: FDA-Public Use
  Company Number: PHEH2006US08026

PATIENT
  Age: 50 Year
  Sex: Female
  Weight: 72.562 kg

DRUGS (6)
  1. SANDOSTATIN LAR [Suspect]
     Indication: CARCINOID SYNDROME
     Dosage: 30 MG, QMO
     Route: 030
     Dates: start: 20001116, end: 20060623
  2. NATURAL REMEDIES [Concomitant]
  3. OXYCODONE HCL [Concomitant]
     Indication: BACK PAIN
     Dosage: 1-2 TABS PO Q4-6HRS PRN
     Route: 048
     Dates: start: 20030101
  4. XANAX [Concomitant]
     Indication: INSOMNIA
     Dosage: 2-3 TABS QHS PRN
     Route: 048
     Dates: start: 19990101
  5. DIFLUCAN [Concomitant]
     Indication: VULVOVAGINAL DISCOMFORT
     Dosage: 150 PO ONCE OR QDX7
     Route: 048
  6. LEXAPRO [Concomitant]
     Indication: MOTOR DYSFUNCTION
     Dosage: 10 MG, QD
     Dates: start: 20060620

REACTIONS (12)
  - ANXIETY [None]
  - CHEMOTHERAPY [None]
  - DEAFNESS BILATERAL [None]
  - DIZZINESS [None]
  - EMBOLISM [None]
  - IMPAIRED DRIVING ABILITY [None]
  - METASTASES TO CENTRAL NERVOUS SYSTEM [None]
  - METASTASES TO LIVER [None]
  - MOTION SICKNESS [None]
  - TUNNEL VISION [None]
  - VISION BLURRED [None]
  - VISUAL FIELD DEFECT [None]
